FAERS Safety Report 11459845 (Version 2)
Quarter: 2015Q4

REPORT INFORMATION
  Report Type: Spontaneous
  Country: ZA (occurrence: ZA)
  Receive Date: 20150904
  Receipt Date: 20151006
  Transmission Date: 20160304
  Serious: Yes (Disabling, Other)
  Sender: FDA-Public Use
  Company Number: ZA-PFIZER INC-2015214123

PATIENT
  Age: 75 Year
  Sex: Female

DRUGS (11)
  1. ALTOSEC /00661201/ [Concomitant]
     Indication: DYSPEPSIA
     Dosage: 20 (UNIT NOT SPECIFIED), 1X/DAY ( EVENING)
  2. PREDNISONE. [Interacting]
     Active Substance: PREDNISONE
     Indication: BLOOD PRESSURE ABNORMAL
     Dosage: 10 MG, 1X/DAY
  3. ASPAVOR [Suspect]
     Active Substance: ATORVASTATIN
     Dosage: 40 MG, 1X/DAY (AT NIGHT)
  4. ESCITALOPRAM [Concomitant]
     Active Substance: ESCITALOPRAM OXALATE
     Dosage: 10 MG, 1X/DAY (MORNING)
  5. LAMICTIN [Concomitant]
     Active Substance: LAMOTRIGINE
     Dosage: 200 MG, 1X/DAY -IN THE MORNING
  6. EPILIZINE [Concomitant]
     Active Substance: VALPROATE SODIUM
     Dosage: 300 MG, 2X/DAY (ONE IN THE MORNING AND ONE  IN THE EVENING)
  7. BILOCOR [Concomitant]
     Active Substance: BISOPROLOL FUMARATE
     Indication: BLOOD PRESSURE MEASUREMENT
     Dosage: 2.5/6.25, 1X/DAY-MORNING
  8. EXFORGE [Concomitant]
     Active Substance: AMLODIPINE BESYLATE\VALSARTAN
     Indication: BLOOD CHOLESTEROL
     Dosage: 5 MG, 1X/DAY (MORNING)
  9. ELTROXIN [Concomitant]
     Active Substance: LEVOTHYROXINE
     Indication: THYROID DISORDER
     Dosage: 1 DF, (MORNING)
  10. LAMICTIN [Concomitant]
     Active Substance: LAMOTRIGINE
     Dosage: 125 MG, 1X/DAY-EVENING
  11. OXYBUTYNIN MYLAN [Concomitant]
     Dosage: 5 MG, 1X/DAY (EVENING)

REACTIONS (7)
  - Senile dementia [Recovered/Resolved]
  - Micturition disorder [Not Recovered/Not Resolved]
  - Abasia [Not Recovered/Not Resolved]
  - Drug interaction [Recovering/Resolving]
  - Fall [Unknown]
  - Psychotic disorder [Recovering/Resolving]
  - Incorrect drug administration duration [Unknown]

NARRATIVE: CASE EVENT DATE: 20150924
